FAERS Safety Report 8485490-X (Version None)
Quarter: 2012Q3

REPORT INFORMATION
  Report Type: 
  Country: None (occurrence: None)
  Receive Date: 20120703
  Receipt Date: 20120622
  Transmission Date: 20120928
  Serious: Yes (Other)
  Sender: FDA-Public Use
  Company Number: JP-VERTEX PHARMACEUTICALS INC.-AE-2012-004790

PATIENT
  Age: 59 Year
  Sex: Female

DRUGS (21)
  1. RABEPRAZOLE SODIUM [Concomitant]
     Route: 048
     Dates: start: 20120301
  2. TELAVIC (TELAPREVIR) [Suspect]
     Indication: HEPATITIS C
     Route: 048
     Dates: start: 20120213, end: 20120406
  3. TELAVIC (TELAPREVIR) [Suspect]
     Route: 048
     Dates: start: 20120407, end: 20120411
  4. URSO 250 [Concomitant]
     Route: 048
  5. ACETAMINOPHEN [Concomitant]
     Route: 048
     Dates: start: 20120301
  6. PEGINTERFERON ALFA-2B [Concomitant]
     Indication: HEPATITIS C
     Route: 058
     Dates: start: 20120213, end: 20120412
  7. RIBAVIRIN [Concomitant]
     Indication: HEPATITIS C
     Route: 048
     Dates: start: 20120213, end: 20120322
  8. RIBAVIRIN [Concomitant]
     Route: 048
     Dates: start: 20120323, end: 20120329
  9. RIZE [Concomitant]
     Route: 048
     Dates: start: 20120414, end: 20120419
  10. FAMOTIDINE [Concomitant]
     Route: 048
     Dates: start: 20120216, end: 20120223
  11. LANSOPRAZOLE [Concomitant]
     Route: 048
     Dates: start: 20120223, end: 20120301
  12. ACETAMINOPHEN [Concomitant]
     Route: 048
     Dates: start: 20120414, end: 20120419
  13. PROCHLORPERAZINE [Concomitant]
     Route: 048
     Dates: start: 20120322
  14. DIOVAN [Concomitant]
     Route: 048
  15. MOTILIUM [Concomitant]
     Route: 048
     Dates: end: 20120412
  16. TELAVIC (TELAPREVIR) [Suspect]
     Route: 048
     Dates: start: 20120412, end: 20120419
  17. RIBAVIRIN [Concomitant]
     Route: 048
     Dates: start: 20120329, end: 20120419
  18. GLYCYRON [Concomitant]
     Route: 048
  19. MOTILIUM [Concomitant]
     Route: 048
     Dates: start: 20120217, end: 20120301
  20. RABEPRAZOLE SODIUM [Concomitant]
     Route: 048
     Dates: end: 20120412
  21. PROCHLORPERAZINE [Concomitant]
     Route: 048
     Dates: end: 20120412

REACTIONS (1)
  - SKIN EXFOLIATION [None]
